FAERS Safety Report 25775861 (Version 1)
Quarter: 2025Q3

REPORT INFORMATION
  Report Type: Report from Study
  Country: BR (occurrence: BR)
  Receive Date: 20250909
  Receipt Date: 20250909
  Transmission Date: 20251020
  Serious: Yes (Death, Hospitalization, Other)
  Sender: JOHNSON AND JOHNSON
  Company Number: BR-JNJFOC-20250907182

PATIENT
  Age: 81 Year
  Sex: Male

DRUGS (3)
  1. GOLIMUMAB [Suspect]
     Active Substance: GOLIMUMAB
     Indication: Rheumatoid arthritis
     Route: 058
     Dates: start: 20191011
  2. GOLIMUMAB [Suspect]
     Active Substance: GOLIMUMAB
  3. GOLIMUMAB [Suspect]
     Active Substance: GOLIMUMAB

REACTIONS (9)
  - Skin necrosis [Fatal]
  - Prostatic disorder [Recovering/Resolving]
  - Cataract [Unknown]
  - Fall [Recovering/Resolving]
  - Intracranial aneurysm [Recovering/Resolving]
  - Hypoacusis [Unknown]
  - COVID-19 [Recovering/Resolving]
  - Depressed mood [Not Recovered/Not Resolved]
  - Discouragement [Unknown]
